FAERS Safety Report 25214656 (Version 1)
Quarter: 2025Q2

REPORT INFORMATION
  Report Type: Spontaneous
  Country: FR (occurrence: FR)
  Receive Date: 20250418
  Receipt Date: 20250418
  Transmission Date: 20250717
  Serious: Yes (Other)
  Sender: AUROBINDO
  Company Number: FR-AFSSAPS-DJ2025000458

PATIENT
  Age: 93 Year
  Sex: Female

DRUGS (3)
  1. CEFIXIME [Suspect]
     Active Substance: CEFIXIME
     Indication: Nephritis bacterial
     Dosage: 200 MILLIGRAM, ONCE A DAY
     Route: 048
     Dates: start: 20240626, end: 20240628
  2. CEFTRIAXONE [Suspect]
     Active Substance: CEFTRIAXONE
     Indication: Nephritis bacterial
     Dosage: 1 GRAM, ONCE A DAY
     Route: 042
     Dates: start: 20240624, end: 20240625
  3. MORPHINE SULFATE [Suspect]
     Active Substance: MORPHINE SULFATE
     Indication: Analgesic intervention supportive therapy
     Route: 048
     Dates: start: 20240624, end: 20240625

REACTIONS (3)
  - Hallucination, visual [Recovered/Resolved]
  - Hallucination, auditory [Recovered/Resolved]
  - Confusional state [Recovered/Resolved]

NARRATIVE: CASE EVENT DATE: 20240626
